FAERS Safety Report 10007174 (Version 1)
Quarter: 2014Q1

REPORT INFORMATION
  Report Type: Spontaneous
  Country: US (occurrence: US)
  Receive Date: 20140313
  Receipt Date: 20140313
  Transmission Date: 20141002
  Serious: No
  Sender: FDA-Public Use
  Company Number: US-PFIZER INC-2014071796

PATIENT
  Age: 56 Year
  Sex: Female
  Weight: 99.77 kg

DRUGS (3)
  1. CELEBREX [Suspect]
     Indication: ARTHRITIS
     Dosage: 300 MG, DAILY
  2. FELDENE [Suspect]
     Indication: ARTHRITIS
     Dosage: UNK
  3. DICLOFENAC [Suspect]
     Indication: ARTHRITIS
     Dosage: UNK

REACTIONS (1)
  - Abdominal pain upper [Unknown]
